FAERS Safety Report 10347511 (Version 1)
Quarter: 2014Q3

REPORT INFORMATION
  Report Type: Spontaneous
  Country: IR (occurrence: IR)
  Receive Date: 20140729
  Receipt Date: 20140729
  Transmission Date: 20150326
  Serious: Yes (Hospitalization, Other)
  Sender: FDA-Public Use
  Company Number: IR-SA-2014SA096943

PATIENT
  Age: 62 Year
  Sex: Female

DRUGS (4)
  1. ZOLPIDEM TARTRATE. [Suspect]
     Active Substance: ZOLPIDEM TARTRATE
     Indication: INSOMNIA
     Dosage: TITRATED DOSE
     Route: 065
  2. ZOLPIDEM TARTRATE. [Suspect]
     Active Substance: ZOLPIDEM TARTRATE
     Indication: INSOMNIA
     Route: 065
  3. ZOLPIDEM TARTRATE. [Suspect]
     Active Substance: ZOLPIDEM TARTRATE
     Indication: INSOMNIA
     Dosage: IN DIVIDED DOSES
     Route: 065
  4. OPIUM [Suspect]
     Active Substance: OPIUM
     Indication: PRODUCT USED FOR UNKNOWN INDICATION
     Route: 048

REACTIONS (19)
  - Drug withdrawal syndrome [Unknown]
  - Agitation [Recovered/Resolved]
  - Drug dependence [Unknown]
  - Drug dependence [Recovered/Resolved]
  - Crying [Recovered/Resolved]
  - Chills [Recovered/Resolved]
  - Irritability [Recovered/Resolved]
  - Drug abuse [Unknown]
  - Asthenia [Recovered/Resolved]
  - Aggression [Recovered/Resolved]
  - Anxiety [Recovered/Resolved]
  - Rebound effect [Unknown]
  - Insomnia [Recovered/Resolved]
  - Confusional state [Recovered/Resolved]
  - Increased appetite [Recovered/Resolved]
  - Dizziness [Recovered/Resolved]
  - Headache [Recovered/Resolved]
  - Impatience [Recovered/Resolved]
  - Restlessness [Recovered/Resolved]

NARRATIVE: CASE EVENT DATE: 2013
